FAERS Safety Report 5208200-8 (Version None)
Quarter: 2007Q1

REPORT INFORMATION
  Report Type: 
  Country: None (occurrence: None)
  Receive Date: 20070115
  Receipt Date: 20070110
  Transmission Date: 20070707
  Serious: Yes (Other)
  Sender: FDA-Public Use
  Company Number: NL-GLAXOSMITHKLINE-B0441364A

PATIENT
  Age: 30 Year
  Sex: Female
  Weight: 78 kg

DRUGS (1)
  1. PAROXETINE HYDROCHLORIDE [Suspect]
     Indication: DEPRESSION
     Dates: start: 19940101

REACTIONS (21)
  - ABNORMAL DREAMS [None]
  - ANXIETY [None]
  - DIARRHOEA [None]
  - DISCOMFORT [None]
  - DISTURBANCE IN ATTENTION [None]
  - DRUG WITHDRAWAL SYNDROME [None]
  - EMOTIONAL DISORDER [None]
  - EYE IRRITATION [None]
  - FATIGUE [None]
  - HEADACHE [None]
  - ILL-DEFINED DISORDER [None]
  - INSOMNIA [None]
  - IRRITABILITY [None]
  - MANIA [None]
  - NIGHT SWEATS [None]
  - PANIC ATTACK [None]
  - RESTLESSNESS [None]
  - SOMNOLENCE [None]
  - URINARY TRACT DISORDER [None]
  - WEIGHT INCREASED [None]
  - YAWNING [None]
